FAERS Safety Report 9561487 (Version 1)
Quarter: 2013Q3

REPORT INFORMATION
  Report Type: Spontaneous
  Country: US (occurrence: US)
  Receive Date: 20130927
  Receipt Date: 20130927
  Transmission Date: 20140515
  Serious: No
  Sender: FDA-Public Use
  Company Number: US-BIOGENIDEC-2013BI060569

PATIENT
  Age: 44 Year
  Sex: Male

DRUGS (13)
  1. TECFIDERA [Suspect]
     Indication: MULTIPLE SCLEROSIS
     Route: 048
     Dates: start: 20130528, end: 20130604
  2. TECFIDERA [Suspect]
     Indication: MULTIPLE SCLEROSIS
     Route: 048
     Dates: start: 20130604
  3. MULTI- VITAMIN [Concomitant]
  4. FISH OIL [Concomitant]
  5. AMANTADINE [Concomitant]
  6. VIT D-3 [Concomitant]
  7. DOCUSATE SOD [Concomitant]
  8. WELLBUTRIN [Concomitant]
  9. AMPYRA [Concomitant]
  10. PRAVASTATIN [Concomitant]
  11. CITALOPRAM [Concomitant]
  12. FENOFIBRATE [Concomitant]
  13. VESICARE [Concomitant]

REACTIONS (1)
  - Extra dose administered [Recovered/Resolved]
